FAERS Safety Report 12737208 (Version 1)
Quarter: 2016Q3

REPORT INFORMATION
  Report Type: Report from Study
  Country: CA (occurrence: CA)
  Receive Date: 20160913
  Receipt Date: 20160913
  Transmission Date: 20161109
  Serious: Yes (Other)
  Sender: FDA-Public Use
  Company Number: CA-JNJFOC-20160906700

PATIENT
  Age: 14 Year
  Sex: Female
  Weight: 65.2 kg

DRUGS (1)
  1. REMICADE [Suspect]
     Active Substance: INFLIXIMAB
     Indication: COLITIS ULCERATIVE
     Route: 042
     Dates: start: 20141207

REACTIONS (2)
  - Sports injury [Unknown]
  - Muscle injury [Unknown]

NARRATIVE: CASE EVENT DATE: 20160802
